FAERS Safety Report 7183046-2 (Version None)
Quarter: 2010Q4

REPORT INFORMATION
  Report Type: 
  Country: None (occurrence: None)
  Receive Date: 20101222
  Receipt Date: 20101217
  Transmission Date: 20110411
  Serious: Yes (Death, Other)
  Sender: FDA-Public Use
  Company Number: US-ASTELLAS-2010US005132

PATIENT

DRUGS (17)
  1. PROGRAF [Suspect]
     Indication: ACUTE GRAFT VERSUS HOST DISEASE
     Dosage: UNK
     Route: 041
     Dates: start: 20090101
  2. IMMUNOSUPPRESSIVE AGENTS [Suspect]
     Indication: LIVER TRANSPLANT
     Dosage: UNK
     Route: 065
     Dates: end: 20081201
  3. CORTICOSTEROID NOS [Suspect]
     Indication: ANAEMIA HAEMOLYTIC AUTOIMMUNE
     Dosage: UNK
     Route: 065
     Dates: start: 20081201
  4. CORTICOSTEROID NOS [Suspect]
     Indication: ACUTE GRAFT VERSUS HOST DISEASE
     Dosage: UNK
     Dates: start: 20090101
  5. RITUXIMAB [Suspect]
     Indication: EPSTEIN-BARR VIRUS ASSOCIATED LYMPHOPROLIFERATIVE DISORDER
     Dosage: UNK
     Route: 065
  6. RITUXIMAB [Suspect]
     Indication: ACUTE GRAFT VERSUS HOST DISEASE
     Dosage: 375 MG/M2 X 3 WEEKS
     Route: 065
     Dates: start: 20090101
  7. ETOPOSIDE [Suspect]
     Indication: EPSTEIN-BARR VIRUS ASSOCIATED LYMPHOPROLIFERATIVE DISORDER
     Dosage: UNK
     Route: 065
  8. PREDNISONE [Suspect]
     Indication: EPSTEIN-BARR VIRUS ASSOCIATED LYMPHOPROLIFERATIVE DISORDER
     Dosage: UNK
     Route: 065
  9. VINCRISTINE [Suspect]
     Indication: EPSTEIN-BARR VIRUS ASSOCIATED LYMPHOPROLIFERATIVE DISORDER
     Dosage: UNK
     Route: 065
  10. CYCLOPHOSPHAMIDE [Suspect]
     Indication: EPSTEIN-BARR VIRUS ASSOCIATED LYMPHOPROLIFERATIVE DISORDER
     Dosage: UNK
     Route: 065
  11. DOXORUBICIN HCL [Suspect]
     Indication: EPSTEIN-BARR VIRUS ASSOCIATED LYMPHOPROLIFERATIVE DISORDER
     Dosage: UNK
     Route: 065
  12. METHYLPREDNISOLONE [Suspect]
     Indication: ACUTE GRAFT VERSUS HOST DISEASE
     Dosage: 2 MG/KG, UNKNOWN/D
     Route: 042
     Dates: start: 20090201
  13. MYCOPHENOLATE MOFETIL [Suspect]
     Indication: ACUTE GRAFT VERSUS HOST DISEASE
     Dosage: 1000 MG, TID
     Route: 048
     Dates: start: 20090101
  14. DACLIZUMAB [Suspect]
     Indication: ACUTE GRAFT VERSUS HOST DISEASE
     Dosage: 1 MG/KG, UID/QD
     Route: 065
     Dates: start: 20090101
  15. ALEMTUZUMAB [Suspect]
     Indication: ACUTE GRAFT VERSUS HOST DISEASE
     Dosage: 3 MG, UID/QD
     Route: 065
     Dates: start: 20090101, end: 20090101
  16. ALEMTUZUMAB [Suspect]
     Dosage: 30 MG/DAY, 3XWEEKLY
     Dates: start: 20090101, end: 20090101
  17. ALEMTUZUMAB [Suspect]
     Dosage: 10 MG/DAY, 3XWEEKLY
     Dates: start: 20090101, end: 20090401

REACTIONS (2)
  - ACANTHAMOEBA INFECTION [None]
  - PSEUDOMONAL SEPSIS [None]
